FAERS Safety Report 10422819 (Version 2)
Quarter: 2014Q3

REPORT INFORMATION
  Report Type: Spontaneous
  Country: FR (occurrence: FR)
  Receive Date: 20140902
  Receipt Date: 20140911
  Transmission Date: 20150326
  Serious: Yes (Congenital Anomaly)
  Sender: FDA-Public Use
  Company Number: FR-AUROBINDO-AUR-APL-2014-09266

PATIENT

DRUGS (10)
  1. OMEPRAZOLE. [Suspect]
     Active Substance: OMEPRAZOLE
     Indication: PRODUCT USED FOR UNKNOWN INDICATION
     Dosage: UNK
     Route: 064
  2. MAALOX ANTACID [Suspect]
     Active Substance: ALUMINUM HYDROXIDE\DIMETHICONE\MAGNESIUM HYDROXIDE
     Indication: PRODUCT USED FOR UNKNOWN INDICATION
     Dosage: UNK
     Route: 065
  3. ZOLPIDEM [Suspect]
     Active Substance: ZOLPIDEM\ZOLPIDEM TARTRATE
     Indication: INSOMNIA
     Dosage: UNK
     Route: 064
     Dates: start: 20140527, end: 20140607
  4. BIPROFENID [Suspect]
     Active Substance: KETOPROFEN
     Indication: TENDONITIS
     Dosage: (100 MG) 1 DF, ONCE A DAY
     Route: 064
     Dates: start: 20140505, end: 20140513
  5. DUPHASTON [Suspect]
     Active Substance: DYDROGESTERONE
     Indication: PRODUCT USED FOR UNKNOWN INDICATION
  6. INORIAL [Suspect]
     Active Substance: BILASTINE
     Indication: HYPERSENSITIVITY
     Dosage: 20 MG, UNK
     Route: 064
     Dates: start: 20140227, end: 20140612
  7. DUPHASTON [Suspect]
     Active Substance: DYDROGESTERONE
     Indication: MENSTRUATION IRREGULAR
     Dosage: 10 DF, MONTHLY
     Route: 064
     Dates: start: 20140301, end: 20140430
  8. PARACETAMOL [Suspect]
     Active Substance: ACETAMINOPHEN
     Indication: PRODUCT USED FOR UNKNOWN INDICATION
     Dosage: UNK
     Route: 064
  9. EUPHYTOSE                          /05965601/ [Suspect]
     Active Substance: HERBALS
     Indication: ANXIETY
     Dosage: 2 DF, TWO TIMES A DAY
     Route: 064
     Dates: start: 20140327, end: 20140403
  10. DONORMYL                           /00886901/ [Suspect]
     Active Substance: DOXYLAMINE SUCCINATE\SODIUM BROMIDE\SODIUM PHOSPHATE, DIBASIC, ANHYDROUS\SODIUM SULFATE
     Indication: NAUSEA
     Dosage: 1 DF, ONCE A DAY
     Route: 064
     Dates: start: 201403, end: 201403

REACTIONS (2)
  - Maternal exposure during pregnancy [Unknown]
  - Cleft lip and palate [Unknown]

NARRATIVE: CASE EVENT DATE: 2014
